FAERS Safety Report 6748428-9 (Version None)
Quarter: 2010Q2

REPORT INFORMATION
  Report Type: 
  Country: None (occurrence: None)
  Receive Date: 20100526
  Receipt Date: 20090811
  Transmission Date: 20101027
  Serious: Yes (Hospitalization, Other)
  Sender: FDA-Public Use
  Company Number: 276965

PATIENT
  Age: 57 Year
  Sex: Female
  Weight: 83 kg

DRUGS (21)
  1. ACTIVELLA [Suspect]
     Indication: MENOPAUSAL SYMPTOMS
     Dosage: ORAL
     Route: 048
     Dates: start: 20010817, end: 20020822
  2. ESTRACE [Suspect]
     Indication: MENOPAUSAL SYMPTOMS
     Dosage: 1-2 MG, ORAL
     Route: 048
     Dates: start: 19950127, end: 19960401
  3. PREMPRO [Suspect]
     Indication: MENOPAUSAL SYMPTOMS
     Dosage: 0.625 MG/2.5 MG, ORAL
     Route: 048
     Dates: start: 19960404, end: 20000102
  4. ORTHO-PREFEST (ESTRADIOL, NORGESTIMATE) [Suspect]
     Indication: MENOPAUSAL SYMPTOMS
     Dosage: ORAL
     Route: 048
     Dates: start: 20000128, end: 20010417
  5. MEDROXYPROGESTERONE [Suspect]
     Indication: MENOPAUSAL SYMPTOMS
     Dosage: 2.5 MG, ORAL
     Route: 048
     Dates: start: 20000915, end: 20010413
  6. PROVERA [Suspect]
     Indication: MENOPAUSAL SYMPTOMS
     Dosage: 5 ; 2.5 MG, ORAL
     Route: 048
     Dates: start: 19950127, end: 19960401
  7. PROVERA [Suspect]
     Indication: MENOPAUSAL SYMPTOMS
     Dosage: 5 ; 2.5 MG, ORAL
     Route: 048
     Dates: start: 19970401, end: 19980801
  8. CYCRIN [Suspect]
     Dosage: 2.5 MG, ORAL
     Route: 048
     Dates: start: 19970428
  9. NORVASC /00972401/ (AMLODIPINE) [Concomitant]
  10. ZOLOFT [Concomitant]
  11. AMBIEN [Concomitant]
  12. ZESTRIL [Concomitant]
  13. PRAVACHOL [Concomitant]
  14. PREVACID [Concomitant]
  15. NAPROXEN [Concomitant]
  16. LIPITOR [Concomitant]
  17. PAXIL CR [Concomitant]
  18. MECLIZINE HCL (MECLOZINE HYDROCHLORIDE) [Concomitant]
  19. ZETIA [Concomitant]
  20. NEXIUM [Concomitant]
  21. VYTORIN [Concomitant]

REACTIONS (1)
  - BREAST CANCER STAGE I [None]
